FAERS Safety Report 14248579 (Version 1)
Quarter: 2017Q4

REPORT INFORMATION
  Report Type: Spontaneous
  Country: GB (occurrence: GB)
  Receive Date: 20171202
  Receipt Date: 20171202
  Transmission Date: 20180321
  Serious: Yes (Other)
  Sender: FDA-Public Use
  Company Number: None

PATIENT
  Age: 55 Month
  Sex: Female
  Weight: 69 kg

DRUGS (1)
  1. ELOCON [Suspect]
     Active Substance: MOMETASONE FUROATE

REACTIONS (1)
  - Steroid withdrawal syndrome [None]

NARRATIVE: CASE EVENT DATE: 20170107
